FAERS Safety Report 13546666 (Version 1)
Quarter: 2017Q2

REPORT INFORMATION
  Report Type: Spontaneous
  Country: US (occurrence: US)
  Receive Date: 20170515
  Receipt Date: 20170515
  Transmission Date: 20170830
  Serious: Yes (Hospitalization, Disabling, Other)
  Sender: FDA-Public Use
  Company Number: None

PATIENT
  Age: 59 Year
  Sex: Male
  Weight: 72 kg

DRUGS (8)
  1. FENTANYL TRANSDERMAL SYSTEM [Concomitant]
     Active Substance: FENTANYL
  2. ACETOMINOPHEN [Concomitant]
  3. CALCIUM [Concomitant]
     Active Substance: CALCIUM
  4. FOLATE [Concomitant]
     Active Substance: FOLATE SODIUM
  5. VITAMIN B-6 [Concomitant]
     Active Substance: PYRIDOXINE
  6. IC LEVOFLOXACIN 250 MG TABLET [Suspect]
     Active Substance: LEVOFLOXACIN
     Indication: RESPIRATORY TRACT INFECTION
     Dosage: ?          QUANTITY:14 TABLET(S);?
     Route: 048
     Dates: start: 20170419, end: 20170428
  7. OXYCODONE [Concomitant]
     Active Substance: OXYCODONE
  8. VITAMIN D [Concomitant]
     Active Substance: CHOLECALCIFEROL

REACTIONS (1)
  - Tendon rupture [None]

NARRATIVE: CASE EVENT DATE: 20170428
